FAERS Safety Report 7250725-8 (Version None)
Quarter: 2011Q1

REPORT INFORMATION
  Report Type: 
  Country: None (occurrence: None)
  Receive Date: 20110121
  Receipt Date: 20110121
  Transmission Date: 20110831
  Serious: Yes (Hospitalization)
  Sender: FDA-Public Use
  Company Number: None

PATIENT
  Age: 44 Year
  Sex: Female
  Weight: 63.5036 kg

DRUGS (1)
  1. PROCCHLORPERAZINE 10 MG SANDOZ [Suspect]
     Indication: NAUSEA
     Dosage: 1 TABLET DAILY PO
     Route: 048
     Dates: start: 20110110, end: 20110118

REACTIONS (1)
  - TRISMUS [None]
